FAERS Safety Report 10269031 (Version 5)
Quarter: 2016Q3

REPORT INFORMATION
  Report Type: Spontaneous
  Country: US (occurrence: US)
  Receive Date: 20140630
  Receipt Date: 20160722
  Transmission Date: 20161109
  Serious: Yes (Other)
  Sender: FDA-Public Use
  Company Number: US-ABBVIE-14P-163-1250931-00

PATIENT
  Sex: Male
  Weight: 88.98 kg

DRUGS (6)
  1. SIMVASTATIN. [Suspect]
     Active Substance: SIMVASTATIN
     Indication: CROHN^S DISEASE
     Route: 065
     Dates: start: 2008, end: 201406
  2. HUMIRA [Suspect]
     Active Substance: ADALIMUMAB
     Indication: CROHN^S DISEASE
     Route: 058
     Dates: start: 2008, end: 201406
  3. LISINOPRIL. [Suspect]
     Active Substance: LISINOPRIL
     Indication: CROHN^S DISEASE
     Route: 065
     Dates: start: 2008, end: 201406
  4. PANTOPRAZOLE [Suspect]
     Active Substance: PANTOPRAZOLE SODIUM
     Indication: CROHN^S DISEASE
     Route: 065
     Dates: start: 2008, end: 201406
  5. VITAMIN D [Suspect]
     Active Substance: CHOLECALCIFEROL
     Indication: CROHN^S DISEASE
     Route: 065
     Dates: start: 2008, end: 201406
  6. REMICADE [Suspect]
     Active Substance: INFLIXIMAB
     Indication: CROHN^S DISEASE
     Route: 065
     Dates: start: 2008, end: 201406

REACTIONS (4)
  - Ejection fraction decreased [Not Recovered/Not Resolved]
  - Cardiomyopathy [Not Recovered/Not Resolved]
  - Cardiomegaly [Not Recovered/Not Resolved]
  - Prostate cancer [Recovered/Resolved]

NARRATIVE: CASE EVENT DATE: 2011
